FAERS Safety Report 5251209-9 (Version None)
Quarter: 2007Q1

REPORT INFORMATION
  Report Type: 
  Country: None (occurrence: None)
  Receive Date: 20070228
  Receipt Date: 20070216
  Transmission Date: 20070707
  Serious: Yes (Other)
  Sender: FDA-Public Use
  Company Number: PHBS2007JP02148

PATIENT
  Age: 5 Year
  Sex: Male

DRUGS (3)
  1. GRAPEFRUIT JUICE [Suspect]
  2. TEGRETOL [Suspect]
     Indication: EPILEPSY
     Dosage: 250 MG/DAY
     Route: 048
  3. TEGRETOL [Suspect]
     Dosage: 300 MG/DAY
     Route: 048

REACTIONS (5)
  - CONVULSION [None]
  - DRUG INTERACTION [None]
  - EPILEPSY [None]
  - INCONTINENCE [None]
  - VOMITING [None]
